FAERS Safety Report 6942411-6 (Version None)
Quarter: 2010Q3

REPORT INFORMATION
  Report Type: 
  Country: None (occurrence: None)
  Receive Date: 20100826
  Receipt Date: 20100824
  Transmission Date: 20110219
  Serious: Yes (Death, Hospitalization)
  Sender: FDA-Public Use
  Company Number: PHHY2010TW27874

PATIENT
  Sex: Female

DRUGS (1)
  1. EXJADE [Suspect]
     Indication: APLASTIC ANAEMIA
     Dosage: 1125 MG, UNK
     Route: 048

REACTIONS (2)
  - DEATH [None]
  - PYREXIA [None]
